FAERS Safety Report 7206671-9 (Version None)
Quarter: 2011Q1

REPORT INFORMATION
  Report Type: 
  Country: None (occurrence: None)
  Receive Date: 20110103
  Receipt Date: 20101221
  Transmission Date: 20110831
  Serious: No
  Sender: FDA-Public Use
  Company Number: US-PFIZER INC-2010177589

PATIENT
  Sex: Male
  Weight: 95.238 kg

DRUGS (3)
  1. VIAGRA [Suspect]
     Dosage: 50 MG, AS NEEDED
  2. ACTOS [Concomitant]
     Indication: GLUCOSE TOLERANCE IMPAIRED
     Dosage: UNK
  3. MONTELUKAST [Interacting]
     Indication: SINUSITIS
     Dosage: UNK

REACTIONS (5)
  - HEADACHE [None]
  - HOT FLUSH [None]
  - DRUG INEFFECTIVE [None]
  - DRUG INTERACTION [None]
  - SINUSITIS [None]
